FAERS Safety Report 5312022-7 (Version None)
Quarter: 2007Q2

REPORT INFORMATION
  Report Type: 
  Country: None (occurrence: None)
  Receive Date: 20070430
  Receipt Date: 20060711
  Transmission Date: 20071010
  Serious: No
  Sender: FDA-Public Use
  Company Number: 2006UW14298

PATIENT
  Age: 50 Year
  Sex: Female
  Weight: 70.8 kg

DRUGS (2)
  1. NEXIUM [Suspect]
     Indication: THROAT IRRITATION
     Dosage: TAKES NEXIUM FOR A FEW WEEKS
     Route: 048
     Dates: start: 20060601
  2. LOVASTATIN [Concomitant]

REACTIONS (2)
  - DRUG INEFFECTIVE [None]
  - GINGIVAL PAIN [None]
